FAERS Safety Report 7042565-X (Version None)
Quarter: 2010Q4

REPORT INFORMATION
  Report Type: 
  Country: None (occurrence: None)
  Receive Date: 20101013
  Receipt Date: 20100113
  Transmission Date: 20110411
  Serious: No
  Sender: FDA-Public Use
  Company Number: US-ASTRAZENECA-2009SE29469

PATIENT
  Sex: Female

DRUGS (5)
  1. SYMBICORT [Suspect]
     Dosage: 160/4.5, 2 PUFFS BID
     Route: 055
  2. SYMBICORT [Suspect]
     Dosage: 160/4.5, 1 PUFFS BID
     Route: 055
     Dates: start: 20091129
  3. SYMBICORT [Suspect]
     Dosage: 160/4.5, 2 PUFFS BID
     Route: 055
  4. COMBIVENT [Concomitant]
  5. ALBUTEROL [Concomitant]

REACTIONS (3)
  - DRUG INEFFECTIVE [None]
  - DYSPNOEA [None]
  - THERAPY REGIMEN CHANGED [None]
